FAERS Safety Report 5819085-0 (Version None)
Quarter: 2008Q3

REPORT INFORMATION
  Report Type: 
  Country: None (occurrence: None)
  Receive Date: 20080723
  Receipt Date: 20080722
  Transmission Date: 20090109
  Serious: Yes (Hospitalization)
  Sender: FDA-Public Use
  Company Number: A0738794A

PATIENT
  Age: 60 Year
  Sex: Female
  Weight: 55 kg

DRUGS (1)
  1. ALLI [Suspect]
     Indication: WEIGHT CONTROL
     Dosage: 1CAP PER DAY
     Route: 048
     Dates: start: 20070601

REACTIONS (4)
  - ADVERSE EVENT [None]
  - ANORECTAL DISCOMFORT [None]
  - CONDITION AGGRAVATED [None]
  - SWELLING [None]
